FAERS Safety Report 4653183-2 (Version None)
Quarter: 2005Q2

REPORT INFORMATION
  Report Type: 
  Country: None (occurrence: None)
  Receive Date: 20050503
  Receipt Date: 20050420
  Transmission Date: 20051028
  Serious: Yes (Hospitalization)
  Sender: FDA-Public Use
  Company Number: 2005063474

PATIENT
  Age: 53 Year
  Sex: Female
  Weight: 59.4212 kg

DRUGS (7)
  1. BEXTRA [Suspect]
     Indication: SPINAL OSTEOARTHRITIS
     Dosage: 20 MG (20 MG, 1 IN 1 D) , ORAL
     Route: 048
     Dates: start: 20030101, end: 20050101
  2. CELEBREX [Suspect]
     Indication: SPINAL OSTEOARTHRITIS
     Dosage: 100 MG (100 MG, 1 IN 1 D), ORAL
     Route: 048
     Dates: start: 20020101, end: 20020101
  3. CYCLOBENZAPRINE HYDROCHLORIDE [Concomitant]
  4. CARISOPRODOL [Concomitant]
  5. PROPACET 100 [Concomitant]
  6. NICOTINIC ACID [Concomitant]
  7. METOPROLOL TARTRATE [Concomitant]

REACTIONS (4)
  - CORONARY ARTERY OCCLUSION [None]
  - DRUG INEFFECTIVE [None]
  - DYSPEPSIA [None]
  - HYPERTENSION [None]
